FAERS Safety Report 6804823-0 (Version None)
Quarter: 2010Q2

REPORT INFORMATION
  Report Type: 
  Country: None (occurrence: None)
  Receive Date: 20100628
  Receipt Date: 20070625
  Transmission Date: 20101027
  Serious: No
  Sender: FDA-Public Use
  Company Number: US-PFIZER INC-2007052450

PATIENT
  Sex: Male

DRUGS (3)
  1. GEODON [Suspect]
     Indication: AGITATION
  2. GEODON [Suspect]
     Indication: HALLUCINATION
  3. GEODON [Suspect]
     Indication: FLASHBACK

REACTIONS (1)
  - EXTRAPYRAMIDAL DISORDER [None]
